FAERS Safety Report 9135772 (Version 1)
Quarter: 2013Q1

REPORT INFORMATION
  Report Type: Report from Study
  Country: US (occurrence: US)
  Receive Date: 20130304
  Receipt Date: 20130304
  Transmission Date: 20140127
  Serious: No
  Sender: FDA-Public Use
  Company Number: US-ABBOTT-12P-163-0918731-00

PATIENT
  Age: 70 None
  Sex: Male
  Weight: 101.7 kg

DRUGS (3)
  1. ANDROGEL 1% [Suspect]
     Indication: BLOOD TESTOSTERONE DECREASED
     Dates: start: 201112, end: 201203
  2. ANDROGEL 1% [Suspect]
     Dosage: 2 PUMPS PER DAY
     Dates: start: 201203
  3. ZETIA [Concomitant]
     Indication: PRODUCT USED FOR UNKNOWN INDICATION

REACTIONS (2)
  - Hypertension [Not Recovered/Not Resolved]
  - Blood testosterone increased [Not Recovered/Not Resolved]
